FAERS Safety Report 5522403-4 (Version None)
Quarter: 2007Q4

REPORT INFORMATION
  Report Type: 
  Country: None (occurrence: None)
  Receive Date: 20071120
  Receipt Date: 20071112
  Transmission Date: 20080405
  Serious: Yes (Hospitalization)
  Sender: FDA-Public Use
  Company Number: US-ELI_LILLY_AND_COMPANY-US200709001380

PATIENT
  Sex: Male

DRUGS (8)
  1. HUMATROPE [Suspect]
     Dosage: 0.6 MG, UNKNOWN
     Route: 058
     Dates: start: 20061001, end: 20070401
  2. HUMATROPE [Suspect]
     Dosage: 0.6 MG, UNKNOWN
     Route: 058
     Dates: start: 20070101, end: 20070101
  3. HUMATROPE [Suspect]
     Dosage: 0.6 MG, UNKNOWN
     Route: 058
     Dates: start: 20070101
  4. GLUCOPHAGE [Concomitant]
     Dosage: 1000 MG, 2/D
  5. AVALIDE [Concomitant]
     Dosage: UNK, DAILY (1/D)
     Route: 048
  6. NEXIUM [Concomitant]
     Dosage: 40 MG, DAILY (1/D)
     Route: 048
  7. CELEBREX [Concomitant]
     Dosage: 100 MG, DAILY (1/D)
  8. CADUET [Concomitant]

REACTIONS (3)
  - INFECTION [None]
  - INTESTINAL PERFORATION [None]
  - PAIN [None]
